FAERS Safety Report 4307103-0 (Version None)
Quarter: 2004Q1

REPORT INFORMATION
  Report Type: 
  Country: None (occurrence: None)
  Receive Date: 20040225
  Receipt Date: 20040211
  Transmission Date: 20041129
  Serious: Yes (Other)
  Sender: FDA-Public Use
  Company Number: US_0402100762

PATIENT
  Sex: Female

DRUGS (1)
  1. HUMULIN N [Suspect]
     Indication: DIABETES MELLITUS
     Dates: start: 19950101

REACTIONS (7)
  - AGEUSIA [None]
  - CRANIAL NEUROPATHY [None]
  - EYE HAEMORRHAGE [None]
  - GASTROOESOPHAGEAL REFLUX DISEASE [None]
  - HEADACHE [None]
  - POST PROCEDURAL COMPLICATION [None]
  - VISUAL ACUITY REDUCED [None]
